FAERS Safety Report 25583605 (Version 1)
Quarter: 2025Q3

REPORT INFORMATION
  Report Type: Spontaneous
  Country: US (occurrence: US)
  Receive Date: 20250721
  Receipt Date: 20250721
  Transmission Date: 20251021
  Serious: No
  Sender: AMGEN
  Company Number: US-AMGEN-USASP2025141092

PATIENT
  Sex: Male

DRUGS (2)
  1. EPOGEN [Suspect]
     Active Substance: ERYTHROPOIETIN
     Indication: Leukaemia
     Dosage: 10000 UNIT, 3 TIMES/WK (MONDAY, WEDNESDAY AND FRIDAY)
     Route: 065
     Dates: start: 2025
  2. EPOGEN [Suspect]
     Active Substance: ERYTHROPOIETIN
     Indication: Off label use

REACTIONS (3)
  - Injection site pain [Unknown]
  - Product dispensing error [Unknown]
  - Off label use [Unknown]

NARRATIVE: CASE EVENT DATE: 20250701
